FAERS Safety Report 10020729 (Version 2)
Quarter: 2014Q2

REPORT INFORMATION
  Report Type: Spontaneous
  Country: IT (occurrence: None)
  Receive Date: 20131127
  Receipt Date: 20140409
  Transmission Date: 20141212
  Serious: Yes (Hospitalization)
  Sender: FDA-Public Use
  Company Number: AUR-APL-2013-03719

PATIENT
  Age: 69 Year
  Sex: Female

DRUGS (12)
  1. DOXAZOSIN (DOXAZOSIN) [Suspect]
     Indication: PRODUCT USED FOR UNKNOWN INDICATION
     Dosage: 8 MG (4 MG,2 IN 1 D)
  2. SUTENT [Suspect]
     Indication: RENAL CELL CARCINOMA
     Dosage: (25 MG,CYCLICAL),ORAL
     Route: 048
     Dates: start: 20090410, end: 201201
  3. CLARITHROMYCIN (CLARITHROMYCIN) [Suspect]
     Indication: PRODUCT USED FOR UNKNOWN INDICATION
     Dosage: 1000 MG (500 MG,2 IN 1 D)
  4. AMIODARONE (AMIODARONE) [Suspect]
     Indication: PRODUCT USED FOR UNKNOWN INDICATION
     Dosage: RAPID INFUSION OF 400 MG IN ONE HOUR, FOLLOWED BY 600 MG IN A CONTINUOUS INFUSION,1000 MG, TOTAL
  5. LERCANIDIPINE (LERCANIDIPINE) [Suspect]
     Indication: PRODUCT USED FOR UNKNOWN INDICATION
  6. WARFARIN SODIUM (WARFARIN SODIUM) [Suspect]
     Indication: PRODUCT USED FOR UNKNOWN INDICATION
  7. PREGABALIN (PREGABALIN) [Suspect]
     Indication: PRODUCT USED FOR UNKNOWN INDICATION
     Route: 048
  8. ALLOPURINOL (ALLOPURINOL) [Concomitant]
  9. LOSARTAN POTASSIUM (LOSARTAN POTASSIUM) [Concomitant]
  10. CARVEDILOL (CARVEDILOL) [Concomitant]
  11. HEPARIN LOW MOLECULAR WEIGHT(HEPARIN-FRACTION) [Concomitant]
  12. FUROSEMIDE (FUROSEMIDE) [Concomitant]

REACTIONS (15)
  - Blood pressure increased [None]
  - Influenza like illness [None]
  - Atrial fibrillation [None]
  - Cardiac failure [None]
  - Renal failure [None]
  - International normalised ratio abnormal [None]
  - Blood pressure inadequately controlled [None]
  - Hypothyroidism [None]
  - Lung disorder [None]
  - Drug interaction [None]
  - Asthenia [None]
  - Orthopnoea [None]
  - Pulmonary oedema [None]
  - Dyspnoea [None]
  - Hypertensive crisis [None]
